FAERS Safety Report 5271586-2 (Version None)
Quarter: 2007Q1

REPORT INFORMATION
  Report Type: 
  Country: None (occurrence: None)
  Receive Date: 20070316
  Receipt Date: 20070308
  Transmission Date: 20070707
  Serious: Yes (Death, Hospitalization, Other)
  Sender: FDA-Public Use
  Company Number: 163-21880-06081512

PATIENT
  Age: 58 Year
  Sex: Male

DRUGS (2)
  1. REVLIMID [Suspect]
     Indication: MYELODYSPLASTIC SYNDROME
     Dosage: 10 MG, 1 IN 1 D, ORAL
     Route: 048
     Dates: start: 20060223, end: 20060101
  2. DACOGEN [Suspect]
     Indication: MYELODYSPLASTIC SYNDROME

REACTIONS (8)
  - BRAIN ABSCESS [None]
  - DISEASE PROGRESSION [None]
  - HAEMORRHAGIC STROKE [None]
  - INFECTION [None]
  - MYELODYSPLASTIC SYNDROME [None]
  - NO THERAPEUTIC RESPONSE [None]
  - PANCYTOPENIA [None]
  - SEPSIS [None]
